FAERS Safety Report 13848382 (Version 1)
Quarter: 2017Q3

REPORT INFORMATION
  Report Type: Spontaneous
  Country: US (occurrence: US)
  Receive Date: 20170809
  Receipt Date: 20170809
  Transmission Date: 20171127
  Serious: No
  Sender: FDA-Public Use
  Company Number: US-PURDUE-USA-2017-0139261

PATIENT
  Sex: Female

DRUGS (3)
  1. BUPRENORPHINE. [Suspect]
     Active Substance: BUPRENORPHINE
     Indication: BACK PAIN
     Dosage: 2 MG, DAILY
     Route: 060
     Dates: start: 20170605
  2. BUTRANS [Suspect]
     Active Substance: BUPRENORPHINE
     Indication: BACK PAIN
     Dosage: 10 MCG/HR, WEEKLY
     Route: 062
     Dates: end: 20170604
  3. BUTRANS [Suspect]
     Active Substance: BUPRENORPHINE
     Dosage: 5 MCG/HR, WEEKLY
     Route: 062

REACTIONS (8)
  - Application site discharge [Recovered/Resolved]
  - Application site erythema [Recovered/Resolved]
  - Drug ineffective [Recovered/Resolved]
  - Application site burn [Recovered/Resolved]
  - Drug effect decreased [Not Recovered/Not Resolved]
  - Application site erosion [Recovered/Resolved]
  - Inappropriate schedule of drug administration [Recovered/Resolved]
  - Feeling abnormal [Not Recovered/Not Resolved]

NARRATIVE: CASE EVENT DATE: 20170603
